FAERS Safety Report 5199073-0 (Version None)
Quarter: 2006Q4

REPORT INFORMATION
  Report Type: 
  Country: None (occurrence: None)
  Receive Date: 20060919
  Receipt Date: 20060530
  Transmission Date: 20070319
  Serious: Yes (Other)
  Sender: FDA-Public Use
  Company Number: HQWYE722402JUN06

PATIENT
  Age: 85 Year
  Sex: Female
  Weight: 59.02 kg

DRUGS (1)
  1. ADVIL [Suspect]
     Indication: ARTHRALGIA
     Dosage: 2 LIQUI-GELS, TWO TIMES PER DAY PER

REACTIONS (1)
  - BLOOD POTASSIUM INCREASED [None]
